FAERS Safety Report 7268158-7 (Version None)
Quarter: 2011Q1

REPORT INFORMATION
  Report Type: 
  Country: None (occurrence: None)
  Receive Date: 20110201
  Receipt Date: 20110121
  Transmission Date: 20110831
  Serious: Yes (Hospitalization, Other)
  Sender: FDA-Public Use
  Company Number: ES-ELI_LILLY_AND_COMPANY-ES201101005781

PATIENT
  Sex: Female

DRUGS (4)
  1. SINTROM [Concomitant]
     Indication: THROMBOSIS
     Route: 048
     Dates: start: 20100401, end: 20101101
  2. ENALAPRIL MALEATE [Concomitant]
     Indication: HYPERTENSION
     Dosage: UNK, DAILY (1/D)
     Route: 048
  3. FORTEO [Suspect]
     Indication: OSTEOPOROSIS
     Dosage: 20 UG, DAILY (1/D)
     Route: 058
     Dates: start: 20101015, end: 20110112
  4. CLEXANE [Concomitant]
     Indication: THROMBOSIS
     Route: 058
     Dates: start: 20100801, end: 20101101

REACTIONS (2)
  - THYROID NEOPLASM [None]
  - PULMONARY THROMBOSIS [None]
